FAERS Safety Report 5823777-7 (Version None)
Quarter: 2008Q3

REPORT INFORMATION
  Report Type: 
  Country: None (occurrence: None)
  Receive Date: 20080725
  Receipt Date: 20080715
  Transmission Date: 20090109
  Serious: Yes (Other)
  Sender: FDA-Public Use
  Company Number: US-MERCK-0804USA03804

PATIENT
  Age: 12 Year
  Sex: Male
  Weight: 68 kg

DRUGS (7)
  1. SINGULAIR [Suspect]
     Indication: HYPERSENSITIVITY
     Route: 048
     Dates: start: 20040501, end: 20080401
  2. SINGULAIR [Suspect]
     Indication: ASTHMA
     Route: 048
     Dates: start: 20040501, end: 20080401
  3. ZYRTEC-D 12 HOUR [Concomitant]
     Indication: HYPERSENSITIVITY
     Route: 048
     Dates: start: 20070801, end: 20080301
  4. VERAMYST [Concomitant]
     Route: 065
     Dates: start: 20080101
  5. NASONEX [Concomitant]
     Indication: HYPERSENSITIVITY
     Dates: start: 20040601, end: 20080301
  6. ALLEGRA-D [Concomitant]
     Route: 065
     Dates: start: 20080101
  7. BIAXIN [Concomitant]
     Indication: SINUSITIS
     Route: 048
     Dates: start: 20080331, end: 20080409

REACTIONS (5)
  - AGGRESSION [None]
  - FIGHT IN SCHOOL [None]
  - OVERDOSE [None]
  - SOCIAL AVOIDANT BEHAVIOUR [None]
  - WITHDRAWAL SYNDROME [None]
